FAERS Safety Report 5147244-1 (Version None)
Quarter: 2006Q4

REPORT INFORMATION
  Report Type: 
  Country: None (occurrence: None)
  Receive Date: 20061103
  Receipt Date: 20061025
  Transmission Date: 20070319
  Serious: Yes (Other)
  Sender: FDA-Public Use
  Company Number: 2006105736

PATIENT
  Age: 66 Year
  Sex: Male

DRUGS (1)
  1. GLUCOTROL XL [Suspect]
     Indication: DIABETES MELLITUS
     Dosage: (5 MG, UNKNOWN)
     Dates: start: 20020401

REACTIONS (2)
  - REMOVAL OF FOREIGN BODY FROM GASTROINTESTINAL TRACT [None]
  - SURGERY [None]
